FAERS Safety Report 7796696-7 (Version None)
Quarter: 2011Q4

REPORT INFORMATION
  Report Type: 
  Country: None (occurrence: None)
  Receive Date: 20111005
  Receipt Date: 20110921
  Transmission Date: 20120403
  Serious: Yes (Hospitalization)
  Sender: FDA-Public Use
  Company Number: FR-JNJFOC-20111000795

PATIENT
  Sex: Female

DRUGS (12)
  1. GAVISCON [Suspect]
     Indication: PRODUCT USED FOR UNKNOWN INDICATION
     Route: 048
     Dates: end: 20110816
  2. DEBRIDAT [Concomitant]
     Route: 065
  3. PRAZEPAM [Suspect]
     Route: 048
     Dates: start: 20110805, end: 20110816
  4. ZOLPIDEM [Suspect]
     Indication: PRODUCT USED FOR UNKNOWN INDICATION
     Route: 048
     Dates: start: 20110805, end: 20110816
  5. SPIRIVA [Concomitant]
     Route: 065
  6. PRAZEPAM [Suspect]
     Indication: PRODUCT USED FOR UNKNOWN INDICATION
     Route: 048
     Dates: start: 20110804
  7. BECLOMETHASONE DIPROPIONATE [Concomitant]
     Route: 065
  8. ACETAMINOPHEN AND TRAMADOL HCL [Suspect]
     Indication: PRODUCT USED FOR UNKNOWN INDICATION
     Route: 048
     Dates: end: 20110816
  9. GAVISCON [Suspect]
     Route: 048
     Dates: start: 20110801
  10. ESCITALOPRAM OXALATE [Suspect]
     Indication: PRODUCT USED FOR UNKNOWN INDICATION
     Route: 048
     Dates: start: 20110805, end: 20110816
  11. NEXIUM [Suspect]
     Indication: PRODUCT USED FOR UNKNOWN INDICATION
     Route: 048
     Dates: start: 20110819
  12. NEXIUM [Suspect]
     Route: 048
     Dates: end: 20110816

REACTIONS (3)
  - FALL [None]
  - DISORIENTATION [None]
  - HYPONATRAEMIA [None]
